FAERS Safety Report 25936071 (Version 1)
Quarter: 2025Q4

REPORT INFORMATION
  Report Type: Spontaneous
  Country: EU (occurrence: EU)
  Receive Date: 20251017
  Receipt Date: 20251017
  Transmission Date: 20260117
  Serious: Yes (Death, Hospitalization, Disabling, Other)
  Sender: MYLAN
  Company Number: EU-SA-2025SA279304

PATIENT
  Age: 61 Year
  Sex: Male

DRUGS (18)
  1. LENALIDOMIDE [Suspect]
     Active Substance: LENALIDOMIDE
     Indication: Plasma cell myeloma
     Dosage: 10 MG, 4 FURTHER CYCLES OF 28 DAYS OF FULL DOSE ISAKRD CONSOLIDATION THERAPY WERE GIVEN
     Dates: start: 20210913, end: 20230424
  2. ISATUXIMAB [Suspect]
     Active Substance: ISATUXIMAB
     Indication: Plasma cell myeloma
     Dosage: 748 MG, 4 FURTHER CYCLES OF 28 DAYS OF FULL DOSE ISAKRD CONSOLIDATION THERAPY WERE GIVEN
     Dates: start: 20210913, end: 20230403
  3. DEXAMETHASONE [Suspect]
     Active Substance: DEXAMETHASONE
     Indication: Plasma cell myeloma
     Dosage: 20 MG, 4 FURTHER CYCLES OF 28 DAYS OF FULL DOSE ISAKRD CONSOLIDATION THERAPY WERE GIVEN
     Dates: start: 20210913, end: 20230424
  4. CARFILZOMIB [Suspect]
     Active Substance: CARFILZOMIB
     Indication: Plasma cell myeloma
     Dosage: 86 MG, 4 FURTHER CYCLES OF 28 DAYS OF FULL DOSE ISAKRD CONSOLIDATION THERAPY WERE GIVEN
     Dates: start: 20210913, end: 20230417
  5. CYCLOPHOSPHAMIDE [Suspect]
     Active Substance: CYCLOPHOSPHAMIDE
     Indication: Plasma cell myeloma
     Dosage: 3860 MILLIGRAM AFTER INDUCTION THERAPY, CYCLOPHOSPHAMIDE (2-3 G/M2) WAS ADMINISTERED
     Dates: start: 20220204, end: 20220204
  6. MELPHALAN [Suspect]
     Active Substance: MELPHALAN
     Indication: Plasma cell myeloma
     Dosage: 196 MILLIGRAM (200 MG/M2) FOLLOWED BY ASCT
     Dates: start: 20220305, end: 20220306
  7. GRANULOCYTE COLONY-STIMULATING FACTOR NOS [Suspect]
     Active Substance: GRANULOCYTE COLONY-STIMULATING FACTOR NOS
     Indication: Haematopoietic stem cell mobilisation
     Dosage: UNK
  8. CARBASPIRIN CALCIUM [Concomitant]
     Active Substance: CARBASPIRIN CALCIUM
     Indication: Prophylaxis
     Dosage: UNK
  9. COTRIMOXAZOLE [Concomitant]
     Active Substance: SULFAMETHOXAZOLE\TRIMETHOPRIM
     Indication: Prophylaxis
     Dosage: UNK
  10. COTRIMOXAZOLE [Concomitant]
     Active Substance: SULFAMETHOXAZOLE\TRIMETHOPRIM
     Dosage: UNK
  11. ESOMEPRAZOLE [Concomitant]
     Active Substance: ESOMEPRAZOLE
     Indication: Prophylaxis
     Dosage: UNK
  12. FUROSEMIDE [Concomitant]
     Active Substance: FUROSEMIDE
     Indication: Premedication
     Dosage: UNK
  13. FUROSEMIDE [Concomitant]
     Active Substance: FUROSEMIDE
     Dosage: UNK
  14. METOCLOPRAMIDE [Concomitant]
     Active Substance: METOCLOPRAMIDE
     Indication: Adverse event
     Dosage: UNK
  15. MOVICOLON [Concomitant]
     Active Substance: POLYETHYLENE GLYCOL 3350\POTASSIUM CHLORIDE\SODIUM BICARBONATE\SODIUM CHLORIDE
     Indication: Prophylaxis
     Dosage: UNK
  16. ONDANSETRON [Concomitant]
     Active Substance: ONDANSETRON
     Indication: Adverse event
     Dosage: UNK
  17. SIMVASTATIN [Concomitant]
     Active Substance: SIMVASTATIN
     Indication: Cerebral artery occlusion
     Dosage: UNK
  18. VALACYCLOVIR HYDROCHLORIDE [Concomitant]
     Active Substance: VALACYCLOVIR HYDROCHLORIDE
     Indication: Prophylaxis
     Dosage: UNK

REACTIONS (10)
  - Ischaemic cerebral infarction [Fatal]
  - Nervous system disorder [Fatal]
  - Asthenia [Fatal]
  - Paresis [Fatal]
  - Aphasia [Fatal]
  - Blindness [Fatal]
  - Disturbance in attention [Fatal]
  - Muscular weakness [Fatal]
  - Condition aggravated [Fatal]
  - Monoplegia [Fatal]

NARRATIVE: CASE EVENT DATE: 20230502
